FAERS Safety Report 14359413 (Version 1)
Quarter: 2018Q1

REPORT INFORMATION
  Report Type: Spontaneous
  Country: US (occurrence: US)
  Receive Date: 20180105
  Receipt Date: 20180105
  Transmission Date: 20180509
  Serious: No
  Sender: FDA-Public Use
  Company Number: US-SA-2017SA197601

PATIENT
  Sex: Female

DRUGS (1)
  1. ZANTAC [Suspect]
     Active Substance: RANITIDINE HYDROCHLORIDE
     Dosage: 2 ZANTAC 150 IN THE MORNING AND 2 ZANTAC 150 TABLETS AT NIGHT
     Route: 048

REACTIONS (1)
  - Off label use [Unknown]
